FAERS Safety Report 15321755 (Version 1)
Quarter: 2018Q3

REPORT INFORMATION
  Report Type: Spontaneous
  Country: US (occurrence: US)
  Receive Date: 20180821
  Receipt Date: 20180821
  Transmission Date: 20181010
  Serious: Yes (Hospitalization)
  Sender: FDA-Public Use
  Company Number: None

PATIENT
  Age: 68 Year
  Sex: Female
  Weight: 52.16 kg

DRUGS (7)
  1. DEXAMETHASONE. [Suspect]
     Active Substance: DEXAMETHASONE
     Indication: SUBDURAL HAEMATOMA
     Dosage: ?          QUANTITY:1 DF DOSAGE FORM;?
     Dates: start: 20180105, end: 20180112
  2. HYDROCHLOROTHIAZIDE. [Concomitant]
     Active Substance: HYDROCHLOROTHIAZIDE
  3. BENADRYL [Concomitant]
     Active Substance: DIPHENHYDRAMINE HYDROCHLORIDE
  4. LOSARTIAN [Concomitant]
  5. LAMOTRIGINE. [Concomitant]
     Active Substance: LAMOTRIGINE
  6. TYLENOL [Concomitant]
     Active Substance: ACETAMINOPHEN
  7. ANTIGAS [Concomitant]

REACTIONS (2)
  - Mental status changes [None]
  - Chest pain [None]

NARRATIVE: CASE EVENT DATE: 20180112
